FAERS Safety Report 15506256 (Version 1)
Quarter: 2018Q4

REPORT INFORMATION
  Report Type: Spontaneous
  Country: GB (occurrence: GB)
  Receive Date: 20181016
  Receipt Date: 20181016
  Transmission Date: 20190205
  Serious: Yes (Death)
  Sender: FDA-Public Use
  Company Number: GB-ROCHE-2198914

PATIENT
  Age: 87 Year
  Sex: Male
  Weight: 78.4 kg

DRUGS (6)
  1. CITALOPRAM [Suspect]
     Active Substance: CITALOPRAM HYDROBROMIDE
     Indication: DEPRESSION
     Dosage: ON 30/MAR/2018, RECEIVED MOST RECENT DOSE OF CITALOPRAM.
     Route: 048
     Dates: start: 20180326
  2. CLARITHROMYCIN. [Concomitant]
     Active Substance: CLARITHROMYCIN
     Route: 065
  3. AMLODIPINE [Concomitant]
     Active Substance: AMLODIPINE BESYLATE
     Route: 065
  4. OSELTAMIVIR [Suspect]
     Active Substance: OSELTAMIVIR
     Indication: INFLUENZA
     Dosage: ON 07/MAR/2018, RECEIVED MOST RECENT DOSE OF OSELTAMIVIR.
     Route: 048
     Dates: start: 20180302
  5. LEVOFLOXACIN. [Suspect]
     Active Substance: LEVOFLOXACIN
     Indication: PNEUMONIA
     Dosage: ON 20/MAR/2018, RECEIVED MOST RECENT DOSE OF LEVOFLOXACIN
     Route: 048
     Dates: start: 20180316
  6. CO-AMOXICLAV [Concomitant]
     Active Substance: AMOXICILLIN\CLAVULANATE POTASSIUM
     Route: 065

REACTIONS (3)
  - Depressed mood [Unknown]
  - Fatigue [Unknown]
  - Completed suicide [Fatal]

NARRATIVE: CASE EVENT DATE: 20180330
